FAERS Safety Report 10228534 (Version 2)
Quarter: 2014Q3

REPORT INFORMATION
  Report Type: Report from Study
  Country: EE (occurrence: EE)
  Receive Date: 20140610
  Receipt Date: 20140821
  Transmission Date: 20150326
  Serious: Yes (Hospitalization)
  Sender: FDA-Public Use
  Company Number: EE-B.I. PHARMACEUTICALS,INC./RIDGEFIELD-2014-BI-25430EA

PATIENT
  Age: 67 Year
  Sex: Male
  Weight: 107 kg

DRUGS (14)
  1. MIFLONIDE [Concomitant]
     Active Substance: BUDESONIDE
     Indication: CHRONIC OBSTRUCTIVE PULMONARY DISEASE
     Dosage: DOSE PER APPLICATION AND DAILY DOSE 800 MKG, FORMULATION: INHALER
     Route: 055
     Dates: start: 20140206
  2. GLYCOPYRRONII BROMIDUM [Concomitant]
     Indication: CHRONIC OBSTRUCTIVE PULMONARY DISEASE
     Dosage: 50 MCG
     Route: 055
     Dates: start: 20140207
  3. RYTMONORM [Concomitant]
     Active Substance: PROPAFENONE
     Indication: ATRIAL FIBRILLATION
     Dosage: 300 MG
     Route: 048
     Dates: start: 20140228, end: 20140317
  4. PROPAFENON [Concomitant]
     Active Substance: PROPAFENONE
     Indication: ATRIAL FIBRILLATION
     Dosage: 300 MG
     Route: 048
     Dates: start: 20140206
  5. BUDESONID [Concomitant]
     Active Substance: BUDESONIDE
     Indication: CHRONIC OBSTRUCTIVE PULMONARY DISEASE
     Dosage: 800 MCG
     Route: 055
     Dates: start: 20140207
  6. ROSUVASTATIN [Concomitant]
     Active Substance: ROSUVASTATIN
     Indication: DYSLIPIDAEMIA
     Dosage: 10 MG
     Route: 048
     Dates: start: 20140206
  7. ROSUCARD [Concomitant]
     Indication: DYSLIPIDAEMIA
     Dosage: DOSE PER APPLICATION AND DAILY DOSE : 10
     Route: 048
     Dates: start: 20140206
  8. CO-RENITEC [Concomitant]
     Active Substance: ENALAPRIL\HYDROCHLOROTHIAZIDE
     Indication: HYPERTENSION
     Dosage: DOSE PER APPLICATION: 20/12.5 MILLIGRAM; DAILY DOSE: 40/25 MILLIGRAM
     Route: 048
     Dates: start: 20140205
  9. PRADAXA [Suspect]
     Active Substance: DABIGATRAN ETEXILATE MESYLATE
     Indication: ATRIAL FIBRILLATION
     Dosage: 220 MG
     Route: 048
     Dates: start: 20140206, end: 20140317
  10. RETAPHYLLIN [Concomitant]
     Indication: CHRONIC OBSTRUCTIVE PULMONARY DISEASE
     Dosage: 400 MG
     Route: 048
     Dates: start: 20140206
  11. FORADIL [Concomitant]
     Active Substance: FORMOTEROL FUMARATE
     Indication: CHRONIC OBSTRUCTIVE PULMONARY DISEASE
     Dosage: DOSE PER APPLICATION AND DAILY DOSE 24 MKG, FORMULATION: INHALER
     Route: 055
     Dates: start: 20140206
  12. SEEBRI [Concomitant]
     Active Substance: GLYCOPYRRONIUM
     Indication: CHRONIC OBSTRUCTIVE PULMONARY DISEASE
     Dosage: DOSE PER APPLICATION AND DAILY DOSE 50 MKG, FORMULATION: INHALER
     Route: 055
     Dates: start: 20140206
  13. ISOPTIN [Concomitant]
     Active Substance: VERAPAMIL HYDROCHLORIDE
     Indication: ATRIAL FIBRILLATION
     Dosage: 120 MG
     Route: 048
     Dates: start: 201401, end: 20140317
  14. FORMATEROL [Concomitant]
     Indication: CHRONIC OBSTRUCTIVE PULMONARY DISEASE
     Dosage: 24 MCG
     Route: 055
     Dates: start: 20140207

REACTIONS (10)
  - Vomiting [Recovered/Resolved]
  - Asthenia [Recovered/Resolved]
  - Nausea [Recovered/Resolved]
  - Erosive duodenitis [Recovered/Resolved]
  - Hyponatraemia [Recovered/Resolved]
  - Fatigue [Recovered/Resolved]
  - Abdominal pain upper [Recovered/Resolved]
  - Duodenitis [Recovered/Resolved]
  - Confusional state [Recovered/Resolved]
  - Gastritis erosive [Unknown]

NARRATIVE: CASE EVENT DATE: 20140311
